FAERS Safety Report 5460963-2 (Version None)
Quarter: 2007Q3

REPORT INFORMATION
  Report Type: 
  Country: None (occurrence: None)
  Receive Date: 20070823
  Receipt Date: 20070425
  Transmission Date: 20080115
  Serious: Yes (Other)
  Sender: FDA-Public Use
  Company Number: 2007SP007999

PATIENT
  Age: 4 Month
  Sex: Male
  Weight: 6.6 kg

DRUGS (5)
  1. POSACONAZOLE [Suspect]
     Indication: FUNGAL INFECTION
     Dosage: 60 MG; TID; PO; 30 MG; TID; PO
     Route: 048
     Dates: start: 20070416
  2. AMBISOME [Suspect]
     Indication: FUNGAL INFECTION
     Dates: start: 20070416
  3. ETOPOSIDE [Concomitant]
  4. DEXAMETHASONE 0.5MG TAB [Concomitant]
  5. CYCLOSPORINE [Concomitant]

REACTIONS (1)
  - HEPATIC ENZYME INCREASED [None]
